FAERS Safety Report 15493716 (Version 1)
Quarter: 2018Q4

REPORT INFORMATION
  Report Type: Spontaneous
  Country: FR (occurrence: FR)
  Receive Date: 20181012
  Receipt Date: 20181012
  Transmission Date: 20190205
  Serious: Yes (Hospitalization)
  Sender: FDA-Public Use
  Company Number: FR-009507513-1810FRA003670

PATIENT
  Age: 27 Year
  Sex: Female
  Weight: 51 kg

DRUGS (1)
  1. VARNOLINE [Suspect]
     Active Substance: DESOGESTREL\ETHINYL ESTRADIOL
     Indication: CHEMICAL CONTRACEPTION
     Dosage: 1 DF, QD
     Route: 048
     Dates: start: 2011

REACTIONS (8)
  - Formication [Recovered/Resolved]
  - Vomiting [Recovered/Resolved]
  - Cerebral venous thrombosis [Recovering/Resolving]
  - Aphasia [Recovered/Resolved]
  - Facial paresis [Recovered/Resolved]
  - Nausea [Recovered/Resolved]
  - Asthenia [Recovered/Resolved]
  - Headache [Recovered/Resolved]

NARRATIVE: CASE EVENT DATE: 20180818
